FAERS Safety Report 8431747-8 (Version None)
Quarter: 2012Q2

REPORT INFORMATION
  Report Type: 
  Country: None (occurrence: None)
  Receive Date: 20120323
  Receipt Date: 20111109
  Transmission Date: 20120825
  Serious: Yes (Other)
  Sender: FDA-Public Use
  Company Number: 163-21880-11063690

PATIENT
  Age: 76 Year
  Sex: Male
  Weight: 90.7194 kg

DRUGS (12)
  1. REVLIMID [Suspect]
     Indication: MULTIPLE MYELOMA
     Dosage: 10 MG, 21/7, PO
     Route: 048
     Dates: start: 20110528
  2. TRICOR [Concomitant]
  3. NEXIUM [Concomitant]
  4. LISINOPRIL [Concomitant]
  5. OSTEO BI-FLEX (OSTEO BI-FLEX) [Concomitant]
  6. ASPIRIN [Concomitant]
  7. MEDROL DOSEPACK (METHYLPREDNISOLONE) [Concomitant]
  8. FERROUS SULFATE TAB [Concomitant]
  9. CARVEDILOL [Concomitant]
  10. AVODART [Concomitant]
  11. FISH OIL (FISH OIL) [Concomitant]
  12. ROSUVASTATIN [Concomitant]

REACTIONS (3)
  - SWOLLEN TONGUE [None]
  - PHARYNGEAL OEDEMA [None]
  - FULL BLOOD COUNT DECREASED [None]
